FAERS Safety Report 10747941 (Version 3)
Quarter: 2015Q2

REPORT INFORMATION
  Report Type: Spontaneous
  Country: DE (occurrence: DE)
  Receive Date: 20150129
  Receipt Date: 20150504
  Transmission Date: 20150821
  Serious: Yes (Life-Threatening, Hospitalization, Other)
  Sender: FDA-Public Use
  Company Number: DE-JNJFOC-20150112580

PATIENT
  Age: 46 Year
  Sex: Male
  Weight: 85 kg

DRUGS (2)
  1. XARELTO [Suspect]
     Active Substance: RIVAROXABAN
     Indication: EMBOLISM
     Route: 048
     Dates: start: 201410, end: 20141220
  2. MARCUMAR [Concomitant]
     Active Substance: PHENPROCOUMON
     Indication: EMBOLISM
     Route: 065
     Dates: start: 201205, end: 201410

REACTIONS (2)
  - Bleeding varicose vein [Recovered/Resolved]
  - Post thrombotic syndrome [Unknown]

NARRATIVE: CASE EVENT DATE: 20141220
